FAERS Safety Report 18823339 (Version 2)
Quarter: 2021Q3

REPORT INFORMATION
  Report Type: Spontaneous
  Country: US (occurrence: US)
  Receive Date: 20210202
  Receipt Date: 20210923
  Transmission Date: 20211014
  Serious: Yes (Hospitalization, Other)
  Sender: FDA-Public Use
  Company Number: US-ASTRAZENECA-2021A014696

PATIENT
  Age: 49 Year
  Sex: Female
  Weight: 59 kg

DRUGS (25)
  1. PRILOSEC [Suspect]
     Active Substance: OMEPRAZOLE MAGNESIUM
     Route: 048
     Dates: start: 200305, end: 201806
  2. PRILOSEC [Suspect]
     Active Substance: OMEPRAZOLE MAGNESIUM
     Dosage: GENERIC
     Route: 065
     Dates: start: 2018
  3. ALENDRONATE [Concomitant]
     Active Substance: ALENDRONATE SODIUM
  4. PEPCID [Concomitant]
     Active Substance: FAMOTIDINE
  5. NEXIUM 24HR [Suspect]
     Active Substance: ESOMEPRAZOLE MAGNESIUM
     Route: 048
  6. ALENDRONATE [Concomitant]
     Active Substance: ALENDRONATE SODIUM
  7. OXYCODONE [Concomitant]
     Active Substance: OXYCODONE
  8. ZANTAC [Concomitant]
     Active Substance: RANITIDINE HYDROCHLORIDE
  9. PREVACID [Suspect]
     Active Substance: LANSOPRAZOLE
     Dosage: GENERIC
     Route: 065
     Dates: start: 200305, end: 200607
  10. ERGOCALCIFEROL/ACETYLCYSTEINE/ARGININE/RETINOL/GINKGO BILOBA/TOCOPHEROL/MAGNESIUM/ASCORBIC ACID/ZINC [Concomitant]
  11. HYDROCORTISONE. [Concomitant]
     Active Substance: HYDROCORTISONE
  12. SULINDAC. [Concomitant]
     Active Substance: SULINDAC
  13. NEXIUM [Suspect]
     Active Substance: ESOMEPRAZOLE MAGNESIUM
     Dosage: 40.0MG UNKNOWN
     Route: 048
     Dates: start: 201211
  14. TRIMETHOBENZAMIDE [Concomitant]
     Active Substance: TRIMETHOBENZAMIDE
  15. CIMETIDINE [Concomitant]
     Active Substance: CIMETIDINE
  16. PROTONIX [Suspect]
     Active Substance: PANTOPRAZOLE SODIUM
     Route: 065
     Dates: start: 201704
  17. MONTELUKAST [Concomitant]
     Active Substance: MONTELUKAST SODIUM
  18. DRONABINOL. [Concomitant]
     Active Substance: DRONABINOL
  19. PROTONIX [Suspect]
     Active Substance: PANTOPRAZOLE SODIUM
     Route: 065
     Dates: start: 200305, end: 201806
  20. TERBINAFINE. [Concomitant]
     Active Substance: TERBINAFINE
  21. POTASSIUM CHLORIDE. [Concomitant]
     Active Substance: POTASSIUM CHLORIDE
  22. PROPRANOLOL [Concomitant]
     Active Substance: PROPRANOLOL HYDROCHLORIDE
  23. FLUTICASONE. [Concomitant]
     Active Substance: FLUTICASONE
  24. LISINOPRIL. [Concomitant]
     Active Substance: LISINOPRIL
  25. AXID [Concomitant]
     Active Substance: NIZATIDINE

REACTIONS (4)
  - Renal tubular necrosis [Unknown]
  - Renal failure [Unknown]
  - Chronic kidney disease [Unknown]
  - Acute kidney injury [Not Recovered/Not Resolved]

NARRATIVE: CASE EVENT DATE: 2012
